FAERS Safety Report 14293039 (Version 3)
Quarter: 2018Q1

REPORT INFORMATION
  Report Type: Spontaneous
  Country: DE (occurrence: DE)
  Receive Date: 20171215
  Receipt Date: 20180308
  Transmission Date: 20180509
  Serious: Yes (Other)
  Sender: FDA-Public Use
  Company Number: DE-TEVA-2017-DE-831884

PATIENT
  Age: 49 Year
  Sex: Male
  Weight: 89 kg

DRUGS (3)
  1. VENLAFAXIN HARTKAPSELN RETARDIERT [Suspect]
     Active Substance: VENLAFAXINE HYDROCHLORIDE
     Indication: ANXIETY DISORDER
     Route: 048
     Dates: start: 20160722, end: 2017
  2. VENLAFAXIN HARTKAPSELN RETARDIERT [Suspect]
     Active Substance: VENLAFAXINE HYDROCHLORIDE
     Route: 048
     Dates: start: 2017, end: 2017
  3. VENLAFAXIN HARTKAPSELN RETARDIERT [Suspect]
     Active Substance: VENLAFAXINE HYDROCHLORIDE
     Route: 048
     Dates: start: 2017

REACTIONS (3)
  - Hyperhidrosis [Recovering/Resolving]
  - Lipase increased [Recovered/Resolved]
  - Abdominal distension [Recovering/Resolving]

NARRATIVE: CASE EVENT DATE: 20170717
